FAERS Safety Report 7276793-5 (Version None)
Quarter: 2011Q1

REPORT INFORMATION
  Report Type: 
  Country: None (occurrence: None)
  Receive Date: 20110207
  Receipt Date: 20110201
  Transmission Date: 20110831
  Serious: Yes (Other)
  Sender: FDA-Public Use
  Company Number: US-SP-2011-00465

PATIENT
  Sex: Male

DRUGS (1)
  1. TICE BCG [Suspect]
     Route: 043

REACTIONS (2)
  - BOVINE TUBERCULOSIS [None]
  - PATHOGEN RESISTANCE [None]
